FAERS Safety Report 5587814-X (Version None)
Quarter: 2007Q4

REPORT INFORMATION
  Report Type: 
  Country: None (occurrence: None)
  Receive Date: 20071211
  Receipt Date: 20070907
  Transmission Date: 20080405
  Serious: No
  Sender: FDA-Public Use
  Company Number: 002#2#2007-00203

PATIENT
  Sex: Male

DRUGS (1)
  1. NEUPRO [Suspect]
     Indication: DRUG USE FOR UNKNOWN INDICATION
     Dosage: MG/24H, 1 IN 1; TRANSDERMAL
     Route: 062
     Dates: start: 20070101

REACTIONS (1)
  - PRURITUS [None]
